FAERS Safety Report 10214064 (Version 1)
Quarter: 2014Q2

REPORT INFORMATION
  Report Type: Spontaneous
  Country: US (occurrence: US)
  Receive Date: 20140603
  Receipt Date: 20140603
  Transmission Date: 20141212
  Serious: No
  Sender: FDA-Public Use
  Company Number: US-009507513-1405USA015483

PATIENT
  Age: 83 Year
  Sex: Female
  Weight: 63.49 kg

DRUGS (4)
  1. OXYTROL FOR WOMEN [Suspect]
     Indication: URINARY INCONTINENCE
     Dosage: UNK, EVERY FOUR DAYS/SEVERAL MONTHS
     Route: 062
     Dates: start: 2014
  2. CYANOCOBALAMIN [Concomitant]
     Indication: NEUROPATHY PERIPHERAL
     Dosage: SHOTS
  3. SIMVASTATIN TABLETS, USP [Concomitant]
  4. AZOPT [Concomitant]
     Indication: GLAUCOMA

REACTIONS (3)
  - Drug effect incomplete [Not Recovered/Not Resolved]
  - Product adhesion issue [Unknown]
  - Product quality issue [Unknown]
